FAERS Safety Report 7313125-8 (Version None)
Quarter: 2011Q1

REPORT INFORMATION
  Report Type: 
  Country: None (occurrence: None)
  Receive Date: 20110215
  Receipt Date: 20110215
  Transmission Date: 20110831
  Serious: Yes (Hospitalization)
  Sender: FDA-Public Use
  Company Number: None

PATIENT
  Age: 65 Year
  Sex: Male
  Weight: 109.5 kg

DRUGS (1)
  1. SULFAMETHOXAZOLE AND TRIMETHOPRIM [Suspect]
     Dosage: BID PO
     Route: 048
     Dates: start: 20100805, end: 20100821

REACTIONS (11)
  - NAUSEA [None]
  - HYPOPHAGIA [None]
  - PROTEINURIA [None]
  - TOXICITY TO VARIOUS AGENTS [None]
  - BRADYCARDIA [None]
  - VOMITING [None]
  - RENAL FAILURE ACUTE [None]
  - DEVICE MISUSE [None]
  - HYPERKALAEMIA [None]
  - HYDRONEPHROSIS [None]
  - ELECTROLYTE IMBALANCE [None]
